FAERS Safety Report 17445957 (Version 3)
Quarter: 2020Q1

REPORT INFORMATION
  Report Type: Spontaneous
  Country: FR (occurrence: FR)
  Receive Date: 20200221
  Receipt Date: 20200324
  Transmission Date: 20200409
  Serious: Yes (Hospitalization, Other)
  Sender: FDA-Public Use
  Company Number: FR-MYLANLABS-2020M1018371

PATIENT
  Age: 86 Year
  Sex: Male
  Weight: 77 kg

DRUGS (15)
  1. COUMADIN [Concomitant]
     Active Substance: WARFARIN SODIUM
     Dosage: 1 DOSAGE FORM, QD
     Route: 048
     Dates: start: 201911
  2. ALFUZOSIN [Concomitant]
     Active Substance: ALFUZOSIN
     Indication: PROSTATIC ADENOMA
     Dosage: 1 DOSAGE FORM, QD
     Route: 048
     Dates: start: 20190822, end: 201911
  3. BISOPROLOL [Suspect]
     Active Substance: BISOPROLOL
     Dosage: DOSE DECREASED
     Route: 002
     Dates: start: 201911
  4. LASILIX                            /00032601/ [Suspect]
     Active Substance: FUROSEMIDE
     Dosage: DOSE INCREASED (500 MG 1/2 PILL/DAY, 40 MG 1 PILL/DAY (IN
     Route: 002
     Dates: start: 201911
  5. FUROSEMIDE. [Suspect]
     Active Substance: FUROSEMIDE
     Dosage: DOSE INCREASED (500 MG 1/2 PILL/DAY, 40 MG 1 PILL/DAY (IN CASE OF WEIGHT INCREASE
     Route: 002
     Dates: start: 201911
  6. LASILIX                            /00032601/ [Suspect]
     Active Substance: FUROSEMIDE
     Indication: CARDIAC FAILURE
     Dosage: 250 MG, QD
     Route: 002
     Dates: start: 20191013, end: 20191031
  7. FUROSEMIDE. [Suspect]
     Active Substance: FUROSEMIDE
     Indication: CARDIAC FAILURE
     Dosage: DOSE DECREASED
     Route: 002
     Dates: start: 20191113
  8. BISOPROLOL [Suspect]
     Active Substance: BISOPROLOL
     Dosage: 5 MILLIGRAM 0.5 DAY
     Route: 002
     Dates: start: 20191113, end: 201911
  9. TAFAMIDIS [Suspect]
     Active Substance: TAFAMIDIS MEGLUMINE
     Indication: CARDIAC AMYLOIDOSIS
     Dosage: 61 MILLIGRAM, QD
     Route: 048
     Dates: start: 20191017
  10. ALLOPURINOL. [Concomitant]
     Active Substance: ALLOPURINOL
     Indication: GOUT
     Dosage: UNK
     Dates: start: 20150127
  11. COUMADIN [Concomitant]
     Active Substance: WARFARIN SODIUM
     Indication: ATRIAL FIBRILLATION
     Dosage: UNK UNK, UNK
     Route: 048
     Dates: start: 20130211, end: 201911
  12. CETIRIZINE [Concomitant]
     Active Substance: CETIRIZINE HYDROCHLORIDE
     Indication: PRURITUS
     Dosage: UNK
     Dates: start: 20190822
  13. FUROSEMIDE. [Suspect]
     Active Substance: FUROSEMIDE
     Dosage: 250 MILLIGRAM, QD
     Route: 002
     Dates: start: 20140130, end: 20191031
  14. BISOPROLOL [Suspect]
     Active Substance: BISOPROLOL
     Indication: ATRIAL FIBRILLATION
     Dosage: 5 MG, BID
     Route: 002
     Dates: start: 20130211, end: 20191031
  15. LASILIX                            /00032601/ [Suspect]
     Active Substance: FUROSEMIDE
     Dosage: 80 MG, QD
     Route: 002
     Dates: start: 20191013

REACTIONS (4)
  - Cardiac failure [Recovered/Resolved]
  - Rales [Recovered/Resolved]
  - Dyspnoea [Recovered/Resolved]
  - Tachycardia [Recovered/Resolved]

NARRATIVE: CASE EVENT DATE: 20191116
